FAERS Safety Report 5366488-7 (Version None)
Quarter: 2007Q2

REPORT INFORMATION
  Report Type: 
  Country: None (occurrence: None)
  Receive Date: 20070622
  Receipt Date: 20070613
  Transmission Date: 20071010
  Serious: Yes (Death, Hospitalization)
  Sender: FDA-Public Use
  Company Number: US-JNJFOC-20051000848

PATIENT
  Sex: Female
  Weight: 63.5 kg

DRUGS (1)
  1. ORTHO EVRA [Suspect]
     Indication: CONTRACEPTION
     Route: 062

REACTIONS (4)
  - CEREBROVASCULAR ACCIDENT [None]
  - FEELING COLD [None]
  - HEADACHE [None]
  - MOOD ALTERED [None]
